FAERS Safety Report 15773209 (Version 2)
Quarter: 2019Q4

REPORT INFORMATION
  Report Type: Report from Study
  Country: US (occurrence: US)
  Receive Date: 20181228
  Receipt Date: 20191223
  Transmission Date: 20200122
  Serious: Yes (Hospitalization)
  Sender: FDA-Public Use
  Company Number: PHHO2018US013177

PATIENT
  Age: 21 Month
  Sex: Male

DRUGS (11)
  1. VINCRISTINE [Concomitant]
     Active Substance: VINCRISTINE
     Indication: ACUTE LYMPHOCYTIC LEUKAEMIA
     Dosage: 0.74 MG, ONCE/SINGLE
     Route: 042
     Dates: start: 20181115, end: 20181115
  2. VINCRISTINE [Concomitant]
     Active Substance: VINCRISTINE
     Dosage: 0.74 MG, ONCE/SINGLE
     Route: 042
     Dates: start: 20181119, end: 20181119
  3. LEUCOVORINE [Concomitant]
     Active Substance: LEUCOVORIN
     Dosage: 7.4 MG, ONCE/SINGLE
     Route: 042
     Dates: start: 20181201, end: 20181201
  4. VINCRISTINE [Concomitant]
     Active Substance: VINCRISTINE
     Dosage: 0.74 MG, ONCE/SINGLE
     Route: 042
  5. CYTARABINE. [Concomitant]
     Active Substance: CYTARABINE
     Indication: ACUTE LYMPHOCYTIC LEUKAEMIA
     Dosage: UNK
     Route: 065
  6. METHOTREXATE SODIUM. [Suspect]
     Active Substance: METHOTREXATE SODIUM
     Indication: ACUTE LYMPHOCYTIC LEUKAEMIA
     Dosage: 8 MG, ONCE/SINGLE
     Route: 037
     Dates: start: 20181115
  7. METHOTREXATE SODIUM. [Suspect]
     Active Substance: METHOTREXATE SODIUM
     Dosage: 1100 MG, OVER 24 HOURS
     Route: 042
     Dates: start: 20181129, end: 20181130
  8. INC424A [Suspect]
     Active Substance: RUXOLITINIB
     Indication: ACUTE LYMPHOCYTIC LEUKAEMIA
     Dosage: 25 MG, BID
     Route: 048
     Dates: start: 20181115
  9. CYCLOPHOSPHAMIDE. [Concomitant]
     Active Substance: CYCLOPHOSPHAMIDE
     Indication: ACUTE LYMPHOCYTIC LEUKAEMIA
     Dosage: UNK
     Route: 065
  10. LEUCOVORINE [Concomitant]
     Active Substance: LEUCOVORIN
     Indication: ACUTE LYMPHOCYTIC LEUKAEMIA
     Dosage: 7.4 MG, ONCE/SINGLE
     Route: 042
     Dates: start: 20181117, end: 20181117
  11. MERCAPTOPURINE. [Suspect]
     Active Substance: MERCAPTOPURINE
     Indication: ACUTE LYMPHOCYTIC LEUKAEMIA
     Dosage: 25 MG, QW3
     Route: 048
     Dates: start: 20181119, end: 20181130

REACTIONS (3)
  - Pyrexia [Recovered/Resolved]
  - Hypophagia [Recovered/Resolved]
  - Febrile neutropenia [Recovered/Resolved]

NARRATIVE: CASE EVENT DATE: 20181202
